FAERS Safety Report 8630863 (Version 4)
Quarter: 2013Q2

REPORT INFORMATION
  Report Type: Report from Study
  Country: CA (occurrence: CA)
  Receive Date: 20120622
  Receipt Date: 20130628
  Transmission Date: 20140414
  Serious: Yes (Other)
  Sender: FDA-Public Use
  Company Number: PHHY2012CA053007

PATIENT
  Age: 74 Year
  Sex: Female

DRUGS (11)
  1. ACLASTA [Suspect]
     Indication: OSTEOPOROSIS
     Dosage: 5 MG
     Route: 042
     Dates: start: 20110610
  2. ACLASTA [Suspect]
     Dosage: 5 MG
     Route: 042
     Dates: start: 20120615
  3. CELEBREX [Concomitant]
     Dosage: UNK UKN, UNK
  4. FLEXERIL [Concomitant]
     Dosage: UNK UKN, UNK
  5. METOPROLOL [Concomitant]
     Dosage: UNK UKN, UNK
  6. TRAMACET [Concomitant]
     Dosage: UNK UKN, UNK
  7. FUROSEMIDE [Concomitant]
     Dosage: UNK UKN, UNK
  8. SLOW-K [Concomitant]
     Dosage: UNK UKN, UNK
  9. LORAZEPAM [Concomitant]
     Dosage: UNK UKN, UNK
  10. TRAZODONE [Concomitant]
     Dosage: UNK UKN, UNK
  11. CRESTOR [Concomitant]
     Dosage: UNK UKN, UNK

REACTIONS (3)
  - Spinal fracture [Recovering/Resolving]
  - Compression fracture [Recovering/Resolving]
  - Drug ineffective [Unknown]
